FAERS Safety Report 5737059-5 (Version None)
Quarter: 2008Q2

REPORT INFORMATION
  Report Type: 
  Country: None (occurrence: None)
  Receive Date: 20080512
  Receipt Date: 20080512
  Transmission Date: 20081010
  Serious: Yes (Other)
  Sender: FDA-Public Use
  Company Number: None

PATIENT
  Sex: Female
  Weight: 52.1637 kg

DRUGS (1)
  1. BENICAR HCT [Suspect]
     Indication: HYPERTENSION
     Dosage: 1 TABLET ONCE A DAY
     Dates: start: 20080307, end: 20080409

REACTIONS (4)
  - CHILLS [None]
  - ECONOMIC PROBLEM [None]
  - MUSCLE SPASMS [None]
  - NAUSEA [None]
